FAERS Safety Report 7853211-7 (Version None)
Quarter: 2011Q4

REPORT INFORMATION
  Report Type: 
  Country: None (occurrence: None)
  Receive Date: 20111026
  Receipt Date: 20111014
  Transmission Date: 20120403
  Serious: Yes (Hospitalization, Other)
  Sender: FDA-Public Use
  Company Number: US-BAYER-2011-023294

PATIENT
  Age: 45 Year
  Sex: Female
  Weight: 89.796 kg

DRUGS (12)
  1. MOTRIN [Concomitant]
     Indication: RHEUMATOID ARTHRITIS
     Dosage: 600 MG, UNK
     Dates: start: 19900101
  2. LOPRESSOR [Concomitant]
     Indication: HYPERTENSION
     Dosage: 25 MG, UNK
     Dates: start: 20000101
  3. CALCIUM CARBONATE [Concomitant]
     Indication: VITAMIN SUPPLEMENTATION
     Dosage: UNK
     Dates: start: 20050401
  4. MOTRIN [Concomitant]
     Indication: PAIN
  5. ZYRTEC [Concomitant]
  6. VITAMIN E [Concomitant]
     Indication: VITAMIN SUPPLEMENTATION
     Dosage: UNK
     Dates: start: 20050401
  7. METHOTREXATE [Concomitant]
     Indication: RHEUMATOID ARTHRITIS
     Dosage: UNK
     Dates: start: 20000101
  8. PREDNISOLONE [Concomitant]
     Indication: RHEUMATOID ARTHRITIS
     Dosage: 30 MG, UNK
     Dates: start: 20000101
  9. DIAZIDE [Concomitant]
     Indication: HYPERTENSION
     Dosage: UNK
     Dates: start: 20010101
  10. ECHINACEA [Concomitant]
     Dosage: UNK
     Dates: start: 20050401
  11. YASMIN [Suspect]
     Indication: DYSFUNCTIONAL UTERINE BLEEDING
     Dosage: UNK
     Dates: start: 20050310, end: 20050429
  12. MULTI-VITAMIN [Concomitant]
     Indication: VITAMIN SUPPLEMENTATION
     Dosage: UNK
     Dates: start: 20050401

REACTIONS (21)
  - DYSPNOEA [None]
  - CHEST DISCOMFORT [None]
  - DEEP VEIN THROMBOSIS [None]
  - INJURY [None]
  - OEDEMA PERIPHERAL [None]
  - PAIN [None]
  - CHEST PAIN [None]
  - PNEUMONIA [None]
  - PULMONARY EMBOLISM [None]
  - RESPIRATORY MUSCLE WEAKNESS [None]
  - SCAR [None]
  - EMOTIONAL DISTRESS [None]
  - FEAR [None]
  - FATIGUE [None]
  - ANXIETY [None]
  - BACK PAIN [None]
  - DIZZINESS [None]
  - PALPITATIONS [None]
  - MALAISE [None]
  - PAIN IN EXTREMITY [None]
  - GENERAL PHYSICAL HEALTH DETERIORATION [None]
